FAERS Safety Report 4663793-4 (Version None)
Quarter: 2005Q2

REPORT INFORMATION
  Report Type: 
  Country: None (occurrence: None)
  Receive Date: 20050516
  Receipt Date: 20050504
  Transmission Date: 20051028
  Serious: Yes (Other)
  Sender: FDA-Public Use
  Company Number: 2005071112

PATIENT
  Age: 57 Year
  Sex: Female
  Weight: 149.687 kg

DRUGS (2)
  1. CELEBREX [Suspect]
     Indication: ARTHRITIS
     Dosage: 200 MG (200 MG, 1 IN 1 D), ORAL
     Route: 048
     Dates: start: 20041001
  2. MULTIPLE VITAMINS (ASCORBIC ACID, ERGOCALCIFEROL, FOLIC ACID, RETINOL, [Concomitant]

REACTIONS (7)
  - ABDOMINAL PAIN UPPER [None]
  - ARTHRALGIA [None]
  - DIFFICULTY IN WALKING [None]
  - DRUG DOSE OMISSION [None]
  - GASTRIC BYPASS [None]
  - INCORRECT ROUTE OF DRUG ADMINISTRATION [None]
  - POST PROCEDURAL PAIN [None]
